FAERS Safety Report 9137255 (Version 2)
Quarter: 2013Q1

REPORT INFORMATION
  Report Type: Spontaneous
  Country: US (occurrence: US)
  Receive Date: 20130304
  Receipt Date: 20130315
  Transmission Date: 20140127
  Serious: Yes (Other)
  Sender: FDA-Public Use
  Company Number: US-PFIZER INC-2013073568

PATIENT
  Age: 47 Year
  Sex: Male

DRUGS (1)
  1. GABAPENTIN [Suspect]
     Indication: NEURALGIA
     Dosage: UNK
     Dates: start: 20110527

REACTIONS (6)
  - Convulsion [Unknown]
  - Amnesia [Not Recovered/Not Resolved]
  - Disorientation [Unknown]
  - Depression [Unknown]
  - Somnambulism [Unknown]
  - Abnormal behaviour [Unknown]
